FAERS Safety Report 9948349 (Version 2)
Quarter: 2014Q1

REPORT INFORMATION
  Report Type: Report from Study
  Country: US (occurrence: US)
  Receive Date: 20140303
  Receipt Date: 20140303
  Transmission Date: 20141002
  Serious: No
  Sender: FDA-Public Use
  Company Number: US-ABBVIE-13P-163-1052136-00

PATIENT
  Age: 55 Year
  Sex: Female

DRUGS (9)
  1. HUMIRA [Suspect]
     Indication: RHEUMATOID ARTHRITIS
     Dates: start: 20130211
  2. METHOTREXATE [Concomitant]
     Indication: RHEUMATOID ARTHRITIS
     Dosage: WEEKLY
  3. FOLIC ACID [Concomitant]
     Indication: PRODUCT USED FOR UNKNOWN INDICATION
  4. MELOXICAM [Concomitant]
     Indication: RHEUMATOID ARTHRITIS
  5. PREDNISONE [Concomitant]
     Indication: RHEUMATOID ARTHRITIS
  6. ASTHMANEX [Concomitant]
     Indication: ASTHMA
     Dosage: INHALER DAILY
  7. CARBATROL [Concomitant]
     Indication: CONVULSION
  8. BYSTOLIC [Concomitant]
     Indication: HYPERTENSION
  9. ZOFRAN [Concomitant]
     Indication: NAUSEA

REACTIONS (2)
  - Injection site pain [Recovering/Resolving]
  - Injection site bruising [Unknown]
